FAERS Safety Report 9387074 (Version 2)
Quarter: 2015Q2

REPORT INFORMATION
  Report Type: Spontaneous
  Country: JP (occurrence: JP)
  Receive Date: 20130708
  Receipt Date: 20150424
  Transmission Date: 20150821
  Serious: Yes (Other)
  Sender: FDA-Public Use
  Company Number: PHHY2013JP069712

PATIENT
  Age: 60 Year
  Sex: Male

DRUGS (5)
  1. DOXORUBICIN [Suspect]
     Active Substance: DOXORUBICIN
     Indication: LYMPHOMA
  2. VINCRISTINE [Suspect]
     Active Substance: VINCRISTINE
     Indication: LYMPHOMA
  3. RITUXIMAB [Suspect]
     Active Substance: RITUXIMAB
     Indication: LYMPHOMA
  4. PREDNISOLONE. [Suspect]
     Active Substance: PREDNISOLONE
     Indication: LYMPHOMA
  5. CYCLOPHOSPHAMIDE. [Suspect]
     Active Substance: CYCLOPHOSPHAMIDE
     Indication: LYMPHOMA

REACTIONS (10)
  - Lymphadenopathy [Recovering/Resolving]
  - Ureteric dilatation [Recovering/Resolving]
  - Thrombocytopenia [Unknown]
  - Hepatomegaly [Recovering/Resolving]
  - Hydronephrosis [Unknown]
  - B-cell lymphoma [None]
  - Disease recurrence [Unknown]
  - Myelodysplastic syndrome [Unknown]
  - Oedema peripheral [Recovering/Resolving]
  - Pyrexia [Unknown]
